FAERS Safety Report 6763134-2 (Version None)
Quarter: 2010Q2

REPORT INFORMATION
  Report Type: 
  Country: None (occurrence: None)
  Receive Date: 20100608
  Receipt Date: 20100608
  Transmission Date: 20101027
  Serious: Yes (Hospitalization)
  Sender: FDA-Public Use
  Company Number: None

PATIENT
  Age: 36 Year
  Sex: Female
  Weight: 44.5 kg

DRUGS (6)
  1. QUETIAPINE [Suspect]
     Indication: GENERALISED ANXIETY DISORDER
     Dosage: 50 MG IQD PO
     Route: 048
     Dates: start: 20100517, end: 20100601
  2. QUETIAPINE [Suspect]
     Indication: MAJOR DEPRESSION
     Dosage: 50 MG IQD PO
     Route: 048
     Dates: start: 20100517, end: 20100601
  3. AMBIEN CR [Concomitant]
  4. BIRTH CONTROL [Concomitant]
  5. MELATONIN [Concomitant]
  6. VITAMIN DIETARY SUPPLEMENT [Concomitant]

REACTIONS (6)
  - BLOOD ELECTROLYTES DECREASED [None]
  - DEPRESSIVE SYMPTOM [None]
  - FOAMING AT MOUTH [None]
  - HEART RATE DECREASED [None]
  - INCORRECT DOSE ADMINISTERED [None]
  - SUICIDAL IDEATION [None]
